FAERS Safety Report 6158363-5 (Version None)
Quarter: 2009Q2

REPORT INFORMATION
  Report Type: 
  Country: None (occurrence: None)
  Receive Date: 20090413
  Receipt Date: 20090413
  Transmission Date: 20091009
  Serious: Yes (Hospitalization)
  Sender: FDA-Public Use
  Company Number: None

PATIENT
  Age: 52 Year
  Sex: Female
  Weight: 54.4316 kg

DRUGS (1)
  1. TRILYTE [Suspect]
     Indication: COLONOSCOPY
     Dosage: 4 LITERS OVER A FEW HOURS PO
     Route: 048
     Dates: start: 20090313, end: 20090313

REACTIONS (2)
  - MALAISE [None]
  - VOMITING [None]
